FAERS Safety Report 5360726-2 (Version None)
Quarter: 2007Q2

REPORT INFORMATION
  Report Type: 
  Country: None (occurrence: None)
  Receive Date: 20070618
  Receipt Date: 20070608
  Transmission Date: 20071010
  Serious: Yes (Hospitalization)
  Sender: FDA-Public Use
  Company Number: US-ROCHE-494192

PATIENT
  Age: 51 Year
  Sex: Female

DRUGS (4)
  1. PEGASYS [Suspect]
     Indication: HEPATITIS C
     Dosage: RECEIVED A TOTAL OF 14 SHOTS.
     Route: 065
     Dates: start: 20061101, end: 20070202
  2. COPEGUS [Suspect]
     Indication: HEPATITIS C
     Route: 065
     Dates: start: 20061101, end: 20070201
  3. COPEGUS [Suspect]
     Dosage: DOSE REPORTED TO HAVE BEEN DECREASED BY HALF.
     Route: 065
     Dates: start: 20070201, end: 20070207
  4. ATIVAN [Suspect]
     Indication: DRUG USE FOR UNKNOWN INDICATION
     Dosage: FREQUENCY REPORTED AS ^PRN.^
     Route: 042

REACTIONS (8)
  - ANAEMIA [None]
  - CONVULSION [None]
  - HYPOVOLAEMIA [None]
  - LIVER FUNCTION TEST ABNORMAL [None]
  - MENTAL STATUS CHANGES [None]
  - RENAL FAILURE ACUTE [None]
  - THROMBOTIC THROMBOCYTOPENIC PURPURA [None]
  - URINARY TRACT INFECTION [None]
